FAERS Safety Report 6048557-1 (Version None)
Quarter: 2009Q1

REPORT INFORMATION
  Report Type: 
  Country: None (occurrence: None)
  Receive Date: 20090122
  Receipt Date: 20090122
  Transmission Date: 20090719
  Serious: No
  Sender: FDA-Public Use
  Company Number: None

PATIENT
  Age: 54 Year
  Sex: Male
  Weight: 136.0791 kg

DRUGS (2)
  1. METOPROLOL SUCCINATE [Suspect]
     Indication: HYPERTENSION
     Dosage: 50MG ONCE DAILY PO
     Route: 048
     Dates: start: 20080601, end: 20081208
  2. COZAAR [Concomitant]

REACTIONS (9)
  - ASTHENIA [None]
  - DEPRESSION [None]
  - DRY EYE [None]
  - LAZINESS [None]
  - PARAESTHESIA [None]
  - PRODUCT QUALITY ISSUE [None]
  - PRURITUS [None]
  - VISION BLURRED [None]
  - WEIGHT INCREASED [None]
